FAERS Safety Report 8565103-9 (Version None)
Quarter: 2012Q3

REPORT INFORMATION
  Report Type: 
  Country: None (occurrence: None)
  Receive Date: 20120803
  Receipt Date: 20120730
  Transmission Date: 20120928
  Serious: No
  Sender: FDA-Public Use
  Company Number: US-PFIZER INC-2012171131

PATIENT
  Sex: Female

DRUGS (9)
  1. TRAMADOL HCL [Suspect]
     Dosage: UNK
     Route: 048
  2. GABAPENTIN [Suspect]
     Dosage: UNK
     Route: 048
  3. NABUMETONE [Suspect]
     Dosage: UNK
     Route: 048
  4. LISINOPRIL [Suspect]
     Dosage: UNK
     Route: 048
  5. ARICEPT [Suspect]
     Dosage: UNK
     Route: 048
  6. CYCLOBENZAPRINE [Suspect]
     Dosage: UNK
     Route: 048
  7. IBUPROFEN (ADVIL) [Suspect]
     Dosage: UNK
     Route: 048
  8. NAMENDA [Suspect]
     Dosage: UNK
     Route: 048
  9. REMERON [Suspect]
     Dosage: UNK
     Route: 048

REACTIONS (3)
  - CONFUSIONAL STATE [None]
  - DRUG SCREEN POSITIVE [None]
  - TREMOR [None]
